FAERS Safety Report 6205977-X (Version None)
Quarter: 2009Q2

REPORT INFORMATION
  Report Type: 
  Country: None (occurrence: None)
  Receive Date: 20090527
  Receipt Date: 20090527
  Transmission Date: 20091009
  Serious: Yes (Hospitalization)
  Sender: FDA-Public Use
  Company Number: None

PATIENT
  Age: 62 Year
  Sex: Male

DRUGS (1)
  1. PRAMIPEXOLE DIHYDROCHLORIDE [Suspect]
     Indication: RESTLESS LEGS SYNDROME
     Dosage: MG OTHER PO
     Route: 048
     Dates: start: 20071116, end: 20090402

REACTIONS (2)
  - NO THERAPEUTIC RESPONSE [None]
  - SUPRAVENTRICULAR TACHYCARDIA [None]
